FAERS Safety Report 4686515-X (Version None)
Quarter: 2005Q2

REPORT INFORMATION
  Report Type: 
  Country: None (occurrence: None)
  Receive Date: 20050609
  Receipt Date: 20050518
  Transmission Date: 20051028
  Serious: Yes (Hospitalization, Congenital Anomaly, Other)
  Sender: FDA-Public Use
  Company Number: PHRM2005FR01578

PATIENT
  Age: 1 Day
  Sex: Female
  Weight: 3 kg

DRUGS (2)
  1. GARDENAL [Suspect]
     Route: 064
  2. TEGRETOL [Suspect]
     Route: 064

REACTIONS (4)
  - 17-HYDROXYPROGESTERONE INCREASED [None]
  - ADRENOGENITAL SYNDROME [None]
  - BLOOD CORTISOL DECREASED [None]
  - DRUG EXPOSURE DURING PREGNANCY [None]
